FAERS Safety Report 8087098-7 (Version None)
Quarter: 2012Q1

REPORT INFORMATION
  Report Type: 
  Country: None (occurrence: None)
  Receive Date: 20120128
  Receipt Date: 20110523
  Transmission Date: 20120608
  Serious: No
  Sender: FDA-Public Use
  Company Number: US-ABBOTT-11P-163-0727810-00

PATIENT
  Age: 20 Year
  Sex: Female

DRUGS (5)
  1. PREDNISONE TAB [Concomitant]
     Indication: PRODUCT USED FOR UNKNOWN INDICATION
  2. HUMIRA [Suspect]
     Indication: COLITIS
     Dates: start: 20110513
  3. HUMIRA [Suspect]
     Dates: start: 20110520
  4. PREDNISONE TAB [Concomitant]
     Dosage: EVERY WEEK
  5. LIALDA [Concomitant]
     Indication: PRODUCT USED FOR UNKNOWN INDICATION

REACTIONS (3)
  - OROPHARYNGEAL PAIN [None]
  - PYREXIA [None]
  - PHARYNGEAL OEDEMA [None]
